FAERS Safety Report 20840879 (Version 3)
Quarter: 2022Q3

REPORT INFORMATION
  Report Type: Report from Study
  Country: US (occurrence: US)
  Receive Date: 20220517
  Receipt Date: 20220829
  Transmission Date: 20221027
  Serious: Yes (Hospitalization, Other)
  Sender: FDA-Public Use
  Company Number: US-GW PHARMA-2022-US-015549

PATIENT
  Age: 50 Year
  Sex: Female
  Weight: 107 kg

DRUGS (2)
  1. EPIDIOLEX [Suspect]
     Active Substance: CANNABIDIOL
     Indication: Epilepsy
     Dosage: 5 MILLILITER, BID
     Route: 048
  2. EPIDIOLEX [Suspect]
     Active Substance: CANNABIDIOL
     Dosage: 7.5 MILLILITER, BID
     Route: 048

REACTIONS (3)
  - Seizure [Unknown]
  - Seizure [Unknown]
  - Insomnia [Unknown]

NARRATIVE: CASE EVENT DATE: 20220509
